FAERS Safety Report 6833861-7 (Version None)
Quarter: 2010Q3

REPORT INFORMATION
  Report Type: 
  Country: None (occurrence: None)
  Receive Date: 20100712
  Receipt Date: 20070404
  Transmission Date: 20110219
  Serious: No
  Sender: FDA-Public Use
  Company Number: US-PFIZER INC-2007028378

PATIENT
  Sex: Female
  Weight: 83.91 kg

DRUGS (14)
  1. CHANTIX [Suspect]
     Indication: SMOKING CESSATION THERAPY
     Dates: start: 20070328, end: 20070403
  2. ENTOCORT EC [Concomitant]
  3. NORVASC [Concomitant]
  4. TENORMIN [Concomitant]
  5. PAXIL [Concomitant]
  6. HALDOL [Concomitant]
  7. TRAZODONE HYDROCHLORIDE [Concomitant]
  8. VICODIN [Concomitant]
  9. ALEVE (CAPLET) [Concomitant]
  10. FISH OIL [Concomitant]
  11. VITAMINS [Concomitant]
  12. ACETYLSALICYLIC ACID [Concomitant]
  13. ZOCOR [Concomitant]
  14. TRICOR [Concomitant]

REACTIONS (3)
  - ABDOMINAL DISCOMFORT [None]
  - CONSTIPATION [None]
  - INSOMNIA [None]
